FAERS Safety Report 15075420 (Version 2)
Quarter: 2023Q4

REPORT INFORMATION
  Report Type: Spontaneous
  Country: US (occurrence: US)
  Receive Date: 20180627
  Receipt Date: 20231128
  Transmission Date: 20240109
  Serious: No
  Sender: FDA-Public Use
  Company Number: US-SAOL THERAPEUTICS-2018SAO00474

PATIENT
  Age: 77 Year
  Sex: Male

DRUGS (2)
  1. BACLOFEN [Suspect]
     Active Substance: BACLOFEN
     Indication: Muscle spasticity
     Route: 037
  2. BACLOFEN [Suspect]
     Active Substance: BACLOFEN
     Indication: Cerebrovascular accident

REACTIONS (1)
  - Malaise [Unknown]

NARRATIVE: CASE EVENT DATE: 20180329
